FAERS Safety Report 23215795 (Version 1)
Quarter: 2023Q4

REPORT INFORMATION
  Report Type: Report from Study
  Country: IL (occurrence: IL)
  Receive Date: 20231122
  Receipt Date: 20231122
  Transmission Date: 20240109
  Serious: Yes (Hospitalization, Other)
  Sender: FDA-Public Use
  Company Number: IL-TAKEDA-IL201941763

PATIENT
  Age: 12 Year
  Sex: Male
  Weight: 18 kg

DRUGS (3)
  1. IDURSULFASE [Suspect]
     Active Substance: IDURSULFASE
     Indication: Mucopolysaccharidosis II
     Dosage: 4 DOSAGE FORM, 1/WEEK
     Route: 065
     Dates: start: 20131003
  2. IDURSULFASE [Suspect]
     Active Substance: IDURSULFASE
     Dosage: 2 DOSAGE FORM, 1/WEEK
     Route: 065
  3. VPRIV [Suspect]
     Active Substance: VELAGLUCERASE ALFA
     Indication: Mucopolysaccharidosis II
     Dosage: 8 DOSAGE FORM, MONTHLY
     Route: 042
     Dates: start: 20131003

REACTIONS (4)
  - Epilepsy [Recovered/Resolved]
  - Pyrexia [Recovering/Resolving]
  - Rhinorrhoea [Unknown]
  - Diarrhoea [Not Recovered/Not Resolved]

NARRATIVE: CASE EVENT DATE: 20201103
